FAERS Safety Report 7477744-0 (Version None)
Quarter: 2011Q2

REPORT INFORMATION
  Report Type: 
  Country: None (occurrence: None)
  Receive Date: 20110511
  Receipt Date: 20110511
  Transmission Date: 20111010
  Serious: Yes (Hospitalization)
  Sender: FDA-Public Use
  Company Number: None

PATIENT
  Sex: Male
  Weight: 104.2 kg

DRUGS (2)
  1. DAUNORUBICIN HCL [Suspect]
     Dosage: 426 MG
     Dates: end: 20110206
  2. CYTARABINE [Suspect]
     Dosage: 1659 MG
     Dates: end: 20110210

REACTIONS (5)
  - SEPSIS [None]
  - ESCHERICHIA TEST POSITIVE [None]
  - BLOOD PRESSURE DECREASED [None]
  - PLATELET COUNT DECREASED [None]
  - FEBRILE NEUTROPENIA [None]
